FAERS Safety Report 7198262-3 (Version None)
Quarter: 2011Q1

REPORT INFORMATION
  Report Type: 
  Country: None (occurrence: None)
  Receive Date: 20101227
  Receipt Date: 20101213
  Transmission Date: 20110831
  Serious: Yes (Other)
  Sender: FDA-Public Use
  Company Number: PHHY2010FR86844

PATIENT
  Age: 55 Year

DRUGS (2)
  1. AFINITOR [Suspect]
     Indication: RENAL CELL CARCINOMA
     Dosage: UNK
     Dates: start: 20080301
  2. TEMSIROLIMUS [Suspect]

REACTIONS (2)
  - COMPLEX REGIONAL PAIN SYNDROME [None]
  - PAIN IN EXTREMITY [None]
